FAERS Safety Report 9741178 (Version 1)
Quarter: 2013Q4

REPORT INFORMATION
  Report Type: Spontaneous
  Country: FR (occurrence: FR)
  Receive Date: 20131209
  Receipt Date: 20131209
  Transmission Date: 20140711
  Serious: Yes (Other)
  Sender: FDA-Public Use
  Company Number: FR-ABBVIE-13P-056-1177484-00

PATIENT
  Age: 19 Year
  Sex: Male

DRUGS (3)
  1. KALETRA [Suspect]
     Indication: HIGH RISK SEXUAL BEHAVIOUR
     Route: 048
  2. DOXYCYCLINE [Suspect]
     Indication: MALARIA PROPHYLAXIS
     Route: 048
     Dates: start: 20130405, end: 20130612
  3. TRUVADA [Suspect]
     Indication: HIGH RISK SEXUAL BEHAVIOUR
     Dosage: 200/245 MILLIGRAMS
     Route: 048

REACTIONS (4)
  - Staphylococcal skin infection [Unknown]
  - Skin lesion [Unknown]
  - Erysipelas [Unknown]
  - Impetigo [Unknown]
